FAERS Safety Report 7167921-0 (Version None)
Quarter: 2010Q4

REPORT INFORMATION
  Report Type: 
  Country: None (occurrence: None)
  Receive Date: 20101216
  Receipt Date: 20101213
  Transmission Date: 20110411
  Serious: No
  Sender: FDA-Public Use
  Company Number: US-PFIZER INC-2010129993

PATIENT
  Sex: Female
  Weight: 78.912 kg

DRUGS (9)
  1. CHANTIX [Suspect]
     Indication: SMOKING CESSATION THERAPY
     Dosage: 1 MG, 1X/DAY
     Route: 048
     Dates: start: 20100505, end: 20100525
  2. AMOXICILLIN [Suspect]
     Dosage: 250 MG, UNK
     Route: 048
  3. BUPROPION HYDROCHLORIDE [Suspect]
     Dosage: 150 MG, DAILY
     Dates: start: 20100729, end: 20100101
  4. BUPROPION HYDROCHLORIDE [Suspect]
     Dosage: 150 MG, 2X/DAY
  5. BUSPAR [Suspect]
     Indication: MALAISE
     Dosage: 5 MG, 1X/DAY
     Dates: start: 20100729, end: 20100101
  6. BUSPAR [Suspect]
     Indication: FATIGUE
  7. TRIAMCINOLONE ACETONIDE [Concomitant]
     Dosage: 0.1% OINTMENT APPLIED TO ELBOW; 2X/DAY,
     Route: 061
  8. MIRENA [Concomitant]
     Dosage: UNK
     Route: 015
  9. FLUTICASONE [Concomitant]
     Dosage: 50 UG, 2X/DAY

REACTIONS (9)
  - ANGER [None]
  - ANXIETY [None]
  - DISTURBANCE IN ATTENTION [None]
  - DRUG HYPERSENSITIVITY [None]
  - FATIGUE [None]
  - HEADACHE [None]
  - MOOD ALTERED [None]
  - SKIN DISORDER [None]
  - SLEEP DISORDER [None]
